FAERS Safety Report 7006604-4 (Version None)
Quarter: 2010Q3

REPORT INFORMATION
  Report Type: 
  Country: None (occurrence: None)
  Receive Date: 20100921
  Receipt Date: 20100921
  Transmission Date: 20110219
  Serious: Yes (Hospitalization)
  Sender: FDA-Public Use
  Company Number: None

PATIENT
  Sex: Female
  Weight: 73.51 kg

DRUGS (3)
  1. FLUOROURACIL [Suspect]
     Dosage: 900 MG
     Dates: end: 20100818
  2. CYCLOPHOSPHAMIDE [Suspect]
     Dosage: 900 MG
     Dates: end: 20100818
  3. ELLENCE [Suspect]
     Dosage: 137 MG
     Dates: end: 20100818

REACTIONS (3)
  - FATIGUE [None]
  - NAUSEA [None]
  - PANCYTOPENIA [None]
